FAERS Safety Report 7442992-2 (Version None)
Quarter: 2011Q2

REPORT INFORMATION
  Report Type: 
  Country: None (occurrence: None)
  Receive Date: 20110428
  Receipt Date: 20110404
  Transmission Date: 20111010
  Serious: Yes (Other)
  Sender: FDA-Public Use
  Company Number: JP-SANOFI-AVENTIS-2011SA015561

PATIENT

DRUGS (2)
  1. LANTUS [Suspect]
  2. SOLOSTAR [Suspect]

REACTIONS (1)
  - DEVICE MALFUNCTION [None]
